FAERS Safety Report 5673970-1 (Version None)
Quarter: 2008Q1

REPORT INFORMATION
  Report Type: 
  Country: None (occurrence: None)
  Receive Date: 20080317
  Receipt Date: 20080301
  Transmission Date: 20080703
  Serious: Yes (Disabling)
  Sender: FDA-Public Use
  Company Number: JPI-P-003159

PATIENT
  Age: 57 Year
  Sex: Male

DRUGS (6)
  1. LUVOX [Suspect]
     Indication: DEPRESSION
     Dosage: (150 MG, 1 D), ORAL
     Route: 048
     Dates: start: 20040317, end: 20050921
  2. PAROXETINE HCL [Suspect]
     Indication: DEPRESSION
     Dosage: (20 MG, 1 D), ORAL
     Route: 048
     Dates: start: 20040317, end: 20051005
  3. CLOXAZOLAM (CLOXAZOLAM) [Suspect]
     Indication: ANXIETY
     Dosage: (3 MG, 1 D), ORAL
     Route: 048
     Dates: start: 20040317, end: 20050921
  4. FLUPHENAZINE [Suspect]
     Indication: ANXIETY
     Dosage: (0.75 MG, 1 D)
     Dates: start: 20040317, end: 20050921
  5. TRIHEXYPHENIDYL HCL [Suspect]
     Indication: TREMOR
     Dosage: (3 MG, 1 D), ORAL
     Route: 048
     Dates: end: 20050921
  6. ZOLPIDEM TARTRATE [Concomitant]

REACTIONS (4)
  - ALTERED STATE OF CONSCIOUSNESS [None]
  - APATHY [None]
  - ELECTROENCEPHALOGRAM ABNORMAL [None]
  - MEMORY IMPAIRMENT [None]
